FAERS Safety Report 4666387-X (Version None)
Quarter: 2005Q2

REPORT INFORMATION
  Report Type: 
  Country: None (occurrence: None)
  Receive Date: 20050519
  Receipt Date: 20041118
  Transmission Date: 20051028
  Serious: Yes (Life-Threatening)
  Sender: FDA-Public Use
  Company Number: 2004AP05930

PATIENT
  Age: 25426 Day
  Sex: Male

DRUGS (20)
  1. IRESSA [Suspect]
     Indication: LARGE CELL CARCINOMA OF THE RESPIRATORY TRACT STAGE UNSPECIFIED
     Route: 048
     Dates: start: 20040906, end: 20040912
  2. LOXONIN [Suspect]
     Indication: CANCER PAIN
     Route: 048
     Dates: start: 20040611, end: 20040830
  3. VOLTAREN [Suspect]
     Indication: CANCER PAIN
     Route: 054
     Dates: start: 20040830, end: 20040915
  4. GASTER [Concomitant]
     Indication: PROPHYLAXIS
     Route: 048
     Dates: start: 20040611, end: 20040915
  5. NOVAMIN [Concomitant]
     Indication: VOMITING
     Route: 048
     Dates: start: 20040704, end: 20040830
  6. NOVAMIN [Concomitant]
     Route: 048
     Dates: start: 20040831, end: 20040915
  7. DUROTEP [Concomitant]
     Indication: CANCER PAIN
     Dates: start: 20040704, end: 20040902
  8. DUROTEP [Concomitant]
     Dates: start: 20041008, end: 20041103
  9. GASMOTIN [Concomitant]
     Indication: VOMITING
     Route: 048
     Dates: start: 20040704, end: 20040915
  10. MAGLAX [Concomitant]
     Indication: CONSTIPATION
     Route: 048
     Dates: start: 20040707, end: 20040915
  11. MS CONTIN [Concomitant]
     Indication: CANCER PAIN
     Route: 048
     Dates: start: 20040903, end: 20040909
  12. MS CONTIN [Concomitant]
     Route: 048
     Dates: start: 20040910, end: 20040912
  13. MS CONTIN [Concomitant]
     Route: 048
     Dates: start: 20040913, end: 20040914
  14. CARBOPLATIN [Concomitant]
     Dates: start: 20040413, end: 20040521
  15. DOCETAXEL [Concomitant]
     Dates: start: 20040413, end: 20040521
  16. GEMCITABINE [Concomitant]
     Dates: start: 20040413, end: 20040521
  17. RADIOTHERAPY [Concomitant]
     Dosage: GAMMA KNIFE TO BRAIN METASTASES AND MENINGIOMA
     Dates: start: 20040525, end: 20040527
  18. RADIOTHERAPY [Concomitant]
     Dosage: TO CERVICAL SPINE AND THORACIC SPINE
     Dates: start: 20040818, end: 20040826
  19. VINORELBINE TARTRATE [Concomitant]
     Dates: start: 20040603, end: 20040706
  20. VINORELBINE TARTRATE [Concomitant]
     Dates: start: 20040709

REACTIONS (15)
  - ABDOMINAL ABSCESS [None]
  - BLOOD PRESSURE DECREASED [None]
  - CONDITION AGGRAVATED [None]
  - DIARRHOEA [None]
  - DRUG INEFFECTIVE [None]
  - ENTEROCOCCAL INFECTION [None]
  - FLATULENCE [None]
  - LUNG NEOPLASM MALIGNANT [None]
  - METASTASES TO ADRENALS [None]
  - METASTASES TO BONE [None]
  - METASTASES TO LIVER [None]
  - PERITONITIS [None]
  - PURULENCE [None]
  - PYREXIA [None]
  - VOMITING [None]
